FAERS Safety Report 21294715 (Version 1)
Quarter: 2022Q3

REPORT INFORMATION
  Report Type: Report from Study
  Country: CN (occurrence: CN)
  Receive Date: 20220905
  Receipt Date: 20220905
  Transmission Date: 20221027
  Serious: Yes (Hospitalization, Other)
  Sender: FDA-Public Use
  Company Number: CN-QILU PHARMACEUTICAL CO.LTD.-QLU-000068-2022

PATIENT
  Sex: Female

DRUGS (1)
  1. OLANZAPINE [Suspect]
     Active Substance: OLANZAPINE
     Indication: Mental disorder
     Dosage: UNK
     Route: 065

REACTIONS (2)
  - Plasma cell mastitis [Recovered/Resolved]
  - Hyperprolactinaemia [Recovered/Resolved]
